FAERS Safety Report 7337902-2 (Version None)
Quarter: 2011Q1

REPORT INFORMATION
  Report Type: 
  Country: None (occurrence: None)
  Receive Date: 20110308
  Receipt Date: 20110301
  Transmission Date: 20110831
  Serious: Yes (Death, Life-Threatening, Hospitalization)
  Sender: FDA-Public Use
  Company Number: JP-JNJFOC-20110106264

PATIENT
  Sex: Female
  Weight: 57 kg

DRUGS (31)
  1. NORVASC [Concomitant]
     Indication: HYPERTENSION
     Route: 048
  2. HUMULIN R [Concomitant]
     Indication: DIABETES MELLITUS
     Route: 058
  3. VANCOMYCIN HYDROCHLORIDE [Concomitant]
     Route: 041
  4. MINOMYCIN [Concomitant]
     Indication: PYREXIA
     Route: 065
  5. REMINARON [Concomitant]
     Indication: DISSEMINATED INTRAVASCULAR COAGULATION
     Route: 041
  6. ZOSYN [Suspect]
     Indication: INTERSTITIAL LUNG DISEASE
     Route: 041
  7. DAI-KENCHU-TO [Concomitant]
     Indication: CONSTIPATION
     Route: 048
  8. PREDONINE [Concomitant]
     Indication: INTERSTITIAL LUNG DISEASE
     Route: 065
  9. DOXIL [Suspect]
     Indication: OVARIAN CANCER RECURRENT
     Route: 042
  10. BACTRIM [Concomitant]
     Indication: INTERSTITIAL LUNG DISEASE
     Route: 041
  11. SOLU-MEDROL [Concomitant]
     Route: 041
  12. SOLU-MEDROL [Concomitant]
     Route: 041
  13. PREDOPA [Concomitant]
     Indication: BLOOD PRESSURE DECREASED
     Route: 041
  14. ELASPOL [Concomitant]
     Indication: INTERSTITIAL LUNG DISEASE
     Route: 041
  15. FUTHAN [Concomitant]
     Indication: DISSEMINATED INTRAVASCULAR COAGULATION
     Route: 041
  16. PRODIF [Concomitant]
     Indication: FUNGAL INFECTION
     Route: 042
  17. METHYCOBAL [Concomitant]
     Indication: NEUROPATHY PERIPHERAL
     Route: 048
  18. ZITHROMAX [Concomitant]
     Indication: PROPHYLAXIS
     Route: 048
  19. BENAMBAX [Concomitant]
     Indication: INTERSTITIAL LUNG DISEASE
     Route: 041
  20. DOXIL [Suspect]
     Route: 042
  21. MUCOSTA [Concomitant]
     Indication: PROPHYLAXIS
     Route: 048
  22. MAGNESIUM OXIDE [Concomitant]
     Indication: CONSTIPATION
     Route: 048
  23. DORMICUM [Concomitant]
     Indication: RESTLESSNESS
     Route: 042
  24. GOSHA-JINKI-GAN [Concomitant]
     Indication: NEUROPATHY PERIPHERAL
     Route: 048
  25. DALTEPARIN SODIUM [Concomitant]
     Indication: DISSEMINATED INTRAVASCULAR COAGULATION
     Route: 041
  26. DOXIL [Suspect]
     Indication: MALIGNANT PERITONEAL NEOPLASM
     Route: 042
  27. DOXIL [Suspect]
     Route: 042
  28. SOLU-MEDROL [Concomitant]
     Indication: INTERSTITIAL LUNG DISEASE
     Route: 041
  29. DALTEPARIN SODIUM [Concomitant]
     Route: 041
  30. RECOMODULIN [Concomitant]
     Indication: DISSEMINATED INTRAVASCULAR COAGULATION
     Route: 041
  31. CONCENTRATED HUMAN BLOOD PLATELETS [Concomitant]
     Indication: PLATELET COUNT DECREASED
     Route: 041

REACTIONS (13)
  - BLOOD PRESSURE DECREASED [None]
  - ANURIA [None]
  - DEEP VEIN THROMBOSIS [None]
  - DISSEMINATED INTRAVASCULAR COAGULATION [None]
  - HEPATIC FUNCTION ABNORMAL [None]
  - RESTLESSNESS [None]
  - BONE MARROW FAILURE [None]
  - MALAISE [None]
  - INTERSTITIAL LUNG DISEASE [None]
  - PANCYTOPENIA [None]
  - CARDIAC FAILURE [None]
  - DECREASED APPETITE [None]
  - DEHYDRATION [None]
